FAERS Safety Report 23110802 (Version 1)
Quarter: 2023Q4

REPORT INFORMATION
  Report Type: Report from Study
  Country: FR (occurrence: FR)
  Receive Date: 20231026
  Receipt Date: 20231026
  Transmission Date: 20240110
  Serious: Yes (Other)
  Sender: FDA-Public Use
  Company Number: FR-JAZZ PHARMACEUTICALS-2019-FR-007448

PATIENT

DRUGS (5)
  1. DEFITELIO [Suspect]
     Active Substance: DEFIBROTIDE SODIUM
     Indication: Prophylaxis
     Dosage: 25 MG/KG, DAILY
     Route: 042
     Dates: start: 20190321, end: 20190409
  2. URSODIOL [Concomitant]
     Active Substance: URSODIOL
     Indication: Prophylaxis
  3. THIOTEPA [Concomitant]
     Active Substance: THIOTEPA
     Indication: Bone marrow conditioning regimen
     Dosage: 5 MG/KG
  4. BUSULFAN [Concomitant]
     Active Substance: BUSULFAN
     Indication: Bone marrow conditioning regimen
     Dosage: 6.4 MG/KG
  5. FLUDARABINE [Concomitant]
     Active Substance: FLUDARABINE PHOSPHATE
     Indication: Bone marrow conditioning regimen
     Dosage: 150 MG/M2

REACTIONS (2)
  - Acute graft versus host disease [Unknown]
  - Off label use [Unknown]

NARRATIVE: CASE EVENT DATE: 20190321
